FAERS Safety Report 17720208 (Version 2)
Quarter: 2020Q2

REPORT INFORMATION
  Report Type: Spontaneous
  Country: FR (occurrence: FR)
  Receive Date: 20200428
  Receipt Date: 20200514
  Transmission Date: 20200714
  Serious: Yes (Hospitalization, Other)
  Sender: FDA-Public Use
  Company Number: NVSC2020FR114336

PATIENT
  Age: 58 Year
  Sex: Male

DRUGS (3)
  1. REVLIMID [Suspect]
     Active Substance: LENALIDOMIDE
     Indication: PLASMA CELL MYELOMA
     Dosage: 25 MG
     Route: 065
     Dates: start: 20190404
  2. DEXAMETHASONE. [Suspect]
     Active Substance: DEXAMETHASONE
     Indication: PLASMA CELL MYELOMA
     Dosage: 40 MG
     Route: 065
     Dates: start: 20190404
  3. IXAZOMIB [Suspect]
     Active Substance: IXAZOMIB
     Indication: PLASMA CELL MYELOMA
     Dosage: 4 MG
     Route: 065
     Dates: start: 20190404

REACTIONS (10)
  - Acute kidney injury [Not Recovered/Not Resolved]
  - Agranulocytosis [Unknown]
  - Decreased appetite [Unknown]
  - Weight decreased [Unknown]
  - Escherichia infection [Unknown]
  - Plasma cell myeloma recurrent [Unknown]
  - Back pain [Unknown]
  - Hypercalcaemia [Not Recovered/Not Resolved]
  - Leukopenia [Unknown]
  - Lower respiratory tract infection [Unknown]

NARRATIVE: CASE EVENT DATE: 20190601
